FAERS Safety Report 5977580-8 (Version None)
Quarter: 2008Q4

REPORT INFORMATION
  Report Type: 
  Country: None (occurrence: None)
  Receive Date: 20081203
  Receipt Date: 20081127
  Transmission Date: 20090506
  Serious: Yes (Hospitalization)
  Sender: FDA-Public Use
  Company Number: FR-AVENTIS-200813684FR

PATIENT
  Age: 45 Year
  Sex: Female

DRUGS (7)
  1. FLAGYL [Suspect]
     Indication: GASTROINTESTINAL INFECTION
     Route: 048
     Dates: start: 20081008, end: 20081010
  2. MINIRIN [Concomitant]
     Indication: HORMONE REPLACEMENT THERAPY
     Route: 048
  3. HYDROCORTISONE [Concomitant]
     Indication: HORMONE REPLACEMENT THERAPY
     Route: 048
  4. LEVOTHYROX [Concomitant]
     Indication: HORMONE REPLACEMENT THERAPY
     Route: 048
  5. ESTRADERM [Concomitant]
     Indication: HORMONE REPLACEMENT THERAPY
     Route: 061
  6. COLPRONE TAB [Concomitant]
     Indication: HORMONE REPLACEMENT THERAPY
     Route: 048
  7. GLUCOPHAGE [Concomitant]
     Route: 048

REACTIONS (3)
  - DELIRIUM [None]
  - HALLUCINATION, AUDITORY [None]
  - HALLUCINATION, VISUAL [None]
